FAERS Safety Report 20292518 (Version 1)
Quarter: 2022Q1

REPORT INFORMATION
  Report Type: Spontaneous
  Country: US (occurrence: None)
  Receive Date: 20220104
  Receipt Date: 20220104
  Transmission Date: 20220423
  Serious: Yes (Hospitalization)
  Sender: FDA-Public Use
  Company Number: None

PATIENT
  Sex: Female

DRUGS (11)
  1. XOLAIR [Suspect]
     Active Substance: OMALIZUMAB
     Indication: Idiopathic urticaria
     Dosage: FREQUENCY : MONTHLY;?
     Route: 058
     Dates: start: 20211116
  2. APRI TAB [Concomitant]
  3. CLINDAMYCIN PHOSPHATE [Concomitant]
     Active Substance: CLINDAMYCIN PHOSPHATE
  4. ESTRADIOL [Concomitant]
     Active Substance: ESTRADIOL
  5. LEUPROLIDE ACETATE [Concomitant]
     Active Substance: LEUPROLIDE ACETATE
  6. LIDO/PRILOCN CRE [Concomitant]
  7. METHYLPR ACE INJ [Concomitant]
  8. PROGESTERONE [Concomitant]
     Active Substance: PROGESTERONE
  9. PROPRANOLOL CAP ER [Concomitant]
  10. VALACYCLOVIR TAB [Concomitant]
  11. VITAMIN D-1000 [Concomitant]

REACTIONS (2)
  - Pregnancy [None]
  - Maternal exposure timing unspecified [None]
